FAERS Safety Report 5417800-1 (Version None)
Quarter: 2007Q3

REPORT INFORMATION
  Report Type: 
  Country: None (occurrence: None)
  Receive Date: 20070815
  Receipt Date: 20070807
  Transmission Date: 20080115
  Serious: Yes (Hospitalization, Other)
  Sender: FDA-Public Use
  Company Number: 163-21880-07060649

PATIENT
  Age: 72 Year
  Sex: Male

DRUGS (2)
  1. REVLIMID [Suspect]
     Indication: MULTIPLE MYELOMA
     Dosage: 15 MG, DAILY FOR 21 DAYS, EVERY 28 DAYS, ORAL; 25 MG, DAILY TO EVERY OTHER DAY FOR 21 DAYS, ORAL
     Route: 048
     Dates: start: 20070531, end: 20070601
  2. REVLIMID [Suspect]
     Indication: MULTIPLE MYELOMA
     Dosage: 15 MG, DAILY FOR 21 DAYS, EVERY 28 DAYS, ORAL; 25 MG, DAILY TO EVERY OTHER DAY FOR 21 DAYS, ORAL
     Route: 048
     Dates: start: 20070709

REACTIONS (6)
  - ATRIAL FIBRILLATION [None]
  - EMPHYSEMA [None]
  - FATIGUE [None]
  - GASTROOESOPHAGEAL REFLUX DISEASE [None]
  - LOSS OF CONSCIOUSNESS [None]
  - RASH [None]
